FAERS Safety Report 9679081 (Version 1)
Quarter: 2013Q4

REPORT INFORMATION
  Report Type: Spontaneous
  Country: US (occurrence: US)
  Receive Date: 20131108
  Receipt Date: 20131108
  Transmission Date: 20140711
  Serious: Yes (Life-Threatening)
  Sender: FDA-Public Use
  Company Number: US-ROXANE LABORATORIES, INC.-2013-RO-01793RO

PATIENT
  Age: 26 Year
  Sex: Male

DRUGS (1)
  1. METHADONE [Suspect]

REACTIONS (4)
  - Posterior reversible encephalopathy syndrome [Unknown]
  - Overdose [Unknown]
  - Brain stem haemorrhage [Unknown]
  - Brain herniation [Unknown]
